FAERS Safety Report 25439064 (Version 1)
Quarter: 2025Q2

REPORT INFORMATION
  Report Type: Report from Study
  Country: US (occurrence: US)
  Receive Date: 20250616
  Receipt Date: 20250616
  Transmission Date: 20250717
  Serious: Yes (Hospitalization)
  Sender: ROCHE
  Company Number: US-ROCHE-10000285883

PATIENT
  Sex: Female

DRUGS (17)
  1. ACTEMRA ACTPEN [Suspect]
     Active Substance: TOCILIZUMAB
     Indication: Polychondritis
     Dosage: 162 MG/0.9 ML
     Route: 058
  2. ACTEMRA ACTPEN [Suspect]
     Active Substance: TOCILIZUMAB
     Dosage: 162 MG/0.9 ML
     Route: 058
     Dates: start: 20250212
  3. ALBUTEROL SULFATE [Concomitant]
     Active Substance: ALBUTEROL SULFATE
  4. FERROUS SULFATE [Concomitant]
     Active Substance: FERROUS SULFATE
  5. TRELEGY ELLIPTA [Concomitant]
     Active Substance: FLUTICASONE FUROATE\UMECLIDINIUM BROMIDE\VILANTEROL TRIFENATATE
  6. NEURONTIN [Concomitant]
     Active Substance: GABAPENTIN
  7. ENULOSE [Concomitant]
     Active Substance: LACTULOSE
  8. GLUCOPHAGE [Concomitant]
     Active Substance: METFORMIN HYDROCHLORIDE
  9. PRILOSEC [Concomitant]
     Active Substance: OMEPRAZOLE MAGNESIUM
  10. ZOFRAN [Concomitant]
     Active Substance: ONDANSETRON HYDROCHLORIDE
  11. ZOLOFT [Concomitant]
     Active Substance: SERTRALINE HYDROCHLORIDE
  12. RYBELSUS [Concomitant]
     Active Substance: SEMAGLUTIDE
  13. LIORESAL [Concomitant]
     Active Substance: BACLOFEN
  14. SINEQUAN [Concomitant]
     Active Substance: DOXEPIN HYDROCHLORIDE
  15. KLOR-CON/EF [Concomitant]
     Active Substance: POTASSIUM BICARBONATE
  16. AMBIEN [Concomitant]
     Active Substance: ZOLPIDEM TARTRATE
  17. XIFAXAN [Concomitant]
     Active Substance: RIFAXIMIN

REACTIONS (9)
  - Fatigue [Unknown]
  - Brain fog [Unknown]
  - Confusional state [Unknown]
  - Polychondritis [Unknown]
  - Pain [Unknown]
  - Pneumonia [Unknown]
  - Hypoxia [Unknown]
  - Off label use [Unknown]
  - Pneumonia escherichia [Unknown]
